FAERS Safety Report 12733180 (Version 2)
Quarter: 2016Q4

REPORT INFORMATION
  Report Type: Report from Study
  Country: AU (occurrence: AU)
  Receive Date: 20160912
  Receipt Date: 20161010
  Transmission Date: 20170207
  Serious: Yes (Hospitalization, Other)
  Sender: FDA-Public Use
  Company Number: AU-REGENERON PHARMACEUTICALS, INC.-2016-11492

PATIENT

DRUGS (1)
  1. EYLEA [Suspect]
     Active Substance: AFLIBERCEPT
     Indication: DIABETIC RETINAL OEDEMA
     Dosage: 2 MG, UNK
     Route: 031
     Dates: start: 20150810, end: 201511

REACTIONS (8)
  - Cataract [Unknown]
  - Retinal vascular thrombosis [Unknown]
  - Cerebrovascular accident [Recovered/Resolved]
  - Eye disorder [Unknown]
  - Leukaemia [Unknown]
  - Malaise [Unknown]
  - Eye haemorrhage [Unknown]
  - Cataract operation [Unknown]

NARRATIVE: CASE EVENT DATE: 20151127
